FAERS Safety Report 8273278-4 (Version None)
Quarter: 2012Q2

REPORT INFORMATION
  Report Type: 
  Country: None (occurrence: None)
  Receive Date: 20120411
  Receipt Date: 20120406
  Transmission Date: 20120825
  Serious: Yes (Other)
  Sender: FDA-Public Use
  Company Number: JP-PFIZER INC-2012066660

PATIENT
  Age: 73 Year
  Sex: Female

DRUGS (1)
  1. MYCOBUTIN [Suspect]
     Dosage: UNK
     Dates: start: 20120316

REACTIONS (1)
  - BONE MARROW FAILURE [None]
